FAERS Safety Report 19445268 (Version 1)
Quarter: 2021Q2

REPORT INFORMATION
  Report Type: Spontaneous
  Country: IN (occurrence: IN)
  Receive Date: 20210622
  Receipt Date: 20210622
  Transmission Date: 20210717
  Serious: Yes (Other)
  Sender: FDA-Public Use
  Company Number: IN-CADILA HEALTHCARE LIMITED-IN-ZYDUS-066973

PATIENT

DRUGS (4)
  1. SULFAMETHOXAZOLE;TRIMETHOPRIM [Concomitant]
     Active Substance: SULFAMETHOXAZOLE\TRIMETHOPRIM
     Indication: ANTIBIOTIC PROPHYLAXIS
     Dosage: 400 ;80 MG/DAY) FOR THE PAST 6 YEARS
  2. LINEZOLID. [Suspect]
     Active Substance: LINEZOLID
     Indication: CHRONIC GRANULOMATOUS DISEASE
     Dosage: 600 MILLIGRAM, BID
     Route: 048
  3. ITRACONAZOLE. [Suspect]
     Active Substance: ITRACONAZOLE
     Indication: ANTIBIOTIC PROPHYLAXIS
     Dosage: 20 MILLIGRAM, QD
     Route: 065
  4. VANCOMYCIN [Concomitant]
     Active Substance: VANCOMYCIN
     Indication: ANTIBIOTIC PROPHYLAXIS
     Route: 042

REACTIONS (7)
  - Mitochondrial toxicity [Recovered/Resolved]
  - Blood lactic acid increased [Recovered/Resolved]
  - Drug interaction [Recovered/Resolved]
  - Optic neuropathy [Recovered/Resolved]
  - Neuropathy peripheral [Recovered/Resolved]
  - Toxicity to various agents [Recovered/Resolved]
  - Corneal epithelial microcysts [Recovered/Resolved]
